FAERS Safety Report 10102391 (Version 1)
Quarter: 2014Q2

REPORT INFORMATION
  Report Type: Spontaneous
  Country: NL (occurrence: None)
  Receive Date: 20140422
  Receipt Date: 20140422
  Transmission Date: 20141212
  Serious: Yes (Death)
  Sender: FDA-Public Use
  Company Number: 2014AP002659

PATIENT
  Age: 56 Year
  Sex: Male

DRUGS (3)
  1. PREDNISOLONE [Suspect]
     Indication: IMMUNOSUPPRESSANT DRUG THERAPY
  2. MYCOPHENOLATE MOFETIL [Suspect]
     Indication: IMMUNOSUPPRESSANT DRUG THERAPY
  3. TACROLIMUS (TACROLIMUS) [Concomitant]

REACTIONS (7)
  - Transitional cell carcinoma [None]
  - Metastatic carcinoma of the bladder [None]
  - Deep vein thrombosis [None]
  - Peripheral artery thrombosis [None]
  - Ureteric stenosis [None]
  - BK virus infection [None]
  - Metastases to gastrointestinal tract [None]
